FAERS Safety Report 5169005-X (Version None)
Quarter: 2006Q4

REPORT INFORMATION
  Report Type: 
  Country: None (occurrence: None)
  Receive Date: 20061204
  Receipt Date: 20061122
  Transmission Date: 20070319
  Serious: Yes (Other)
  Sender: FDA-Public Use
  Company Number: 2006SP007166

PATIENT
  Age: 38 Year
  Sex: Female

DRUGS (3)
  1. PEG-INTRON [Suspect]
     Indication: HEPATITIS C
     Dosage: 120 MCG; QW
     Dates: end: 20060601
  2. REBETOL [Suspect]
     Indication: HEPATITIS C
     Dosage: 1000 MG; BID; PO
     Route: 048
     Dates: end: 20060601
  3. PRENATAL VITAMINS [Concomitant]

REACTIONS (3)
  - ANTEPARTUM HAEMORRHAGE [None]
  - DRUG EXPOSURE DURING PREGNANCY [None]
  - SYPHILIS TEST POSITIVE [None]
